FAERS Safety Report 7908453-9 (Version None)
Quarter: 2011Q4

REPORT INFORMATION
  Report Type: 
  Country: None (occurrence: None)
  Receive Date: 20111111
  Receipt Date: 20111031
  Transmission Date: 20120403
  Serious: Yes (Hospitalization)
  Sender: FDA-Public Use
  Company Number: US-BAYER-201036139NA

PATIENT
  Age: 50 Year
  Sex: Female
  Weight: 52.154 kg

DRUGS (14)
  1. DROSPIRENONE AND ETHINYL ESTRADIOL [Suspect]
     Indication: CONTRACEPTION
     Dosage: UNK
     Dates: start: 20080701, end: 20100101
  2. IMITREX [Concomitant]
     Dosage: 100 MG, UNK
     Route: 048
  3. ZONISAMIDE [Concomitant]
     Dosage: 50 MG, UNK
     Route: 048
  4. CLIDINIUM/CDP CAPS [Concomitant]
  5. YASMIN [Suspect]
     Indication: MENSTRUAL CYCLE MANAGEMENT
     Dosage: UNK
     Dates: start: 20051201, end: 20060201
  6. YASMIN [Suspect]
     Dosage: UNK
     Dates: start: 20060401, end: 20080601
  7. POTASSIUM CITRATE [Concomitant]
     Dosage: UNK
     Route: 048
     Dates: start: 20070728
  8. AMITRIPTYLINE HCL [Concomitant]
     Dosage: 50 MG, UNK
     Route: 048
  9. DROSPIRENONE AND ETHINYL ESTRADIOL [Suspect]
     Indication: MENSTRUAL CYCLE MANAGEMENT
  10. YASMIN [Suspect]
     Indication: PRODUCT USED FOR UNKNOWN INDICATION
     Dosage: UNK UNK, UNK
     Route: 048
     Dates: start: 20031201, end: 20040201
  11. YAZ [Suspect]
     Indication: CONTRACEPTION
     Dosage: UNK
     Dates: start: 20100501
  12. YAZ [Suspect]
     Indication: MENSTRUAL CYCLE MANAGEMENT
  13. PROMETHAZINE [Concomitant]
     Dosage: 25 MG, UNK
     Route: 048
  14. NEXIUM [Concomitant]

REACTIONS (9)
  - ANXIETY [None]
  - DEPRESSION [None]
  - ABDOMINAL DISTENSION [None]
  - CONSTIPATION [None]
  - FLATULENCE [None]
  - DYSPEPSIA [None]
  - CHOLECYSTECTOMY [None]
  - SCAR [None]
  - DIARRHOEA [None]
